FAERS Safety Report 18275031 (Version 1)
Quarter: 2020Q3

REPORT INFORMATION
  Report Type: Spontaneous
  Country: US (occurrence: US)
  Receive Date: 20200916
  Receipt Date: 20200916
  Transmission Date: 20201103
  Serious: Yes (Hospitalization)
  Sender: FDA-Public Use
  Company Number: US-JNJFOC-A-NJ2019-196926

PATIENT
  Age: 2 Year
  Sex: Female
  Weight: 13.61 kg

DRUGS (16)
  1. DIGOXIN. [Concomitant]
     Active Substance: DIGOXIN
     Dosage: UNK MG
  2. CHLOROTHIAZIDE. [Concomitant]
     Active Substance: CHLOROTHIAZIDE
  3. TRACLEER [Suspect]
     Active Substance: BOSENTAN
     Indication: PULMONARY HYPERTENSION
     Dosage: 16 MG, Q12HRS, VIA GASTROSTOMY TUBE
     Route: 048
     Dates: start: 20180603
  4. REMODULIN [Suspect]
     Active Substance: TREPROSTINIL
     Indication: PRODUCT USED FOR UNKNOWN INDICATION
     Dosage: 20 NG/KG, PER MIN
     Route: 065
     Dates: start: 20190921
  5. ENOXAPARIN [ENOXAPARIN SODIUM] [Concomitant]
     Active Substance: ENOXAPARIN SODIUM
  6. MUPIROCIN. [Concomitant]
     Active Substance: MUPIROCIN
  7. SIROLIMUS. [Concomitant]
     Active Substance: SIROLIMUS
  8. METOCLOPRAMIDE. [Concomitant]
     Active Substance: METOCLOPRAMIDE
  9. SPIRONOLACTONE. [Concomitant]
     Active Substance: SPIRONOLACTONE
  10. ASPIRIN 81 [Concomitant]
     Active Substance: ASPIRIN
  11. SILDENAFIL. [Concomitant]
     Active Substance: SILDENAFIL
     Dosage: 10 MG
  12. OMEPRAZOLE. [Concomitant]
     Active Substance: OMEPRAZOLE
     Dosage: 250 UNK
  13. LASIX [Concomitant]
     Active Substance: FUROSEMIDE
     Dosage: 20 MG
  14. DIURIL [Concomitant]
     Active Substance: CHLOROTHIAZIDE
     Dosage: 250 MG
  15. CETIRIZINE [Concomitant]
     Active Substance: CETIRIZINE HYDROCHLORIDE
  16. FAMOTIDINE. [Concomitant]
     Active Substance: FAMOTIDINE

REACTIONS (10)
  - Gastroenteritis viral [Recovered/Resolved]
  - Rhinorrhoea [Unknown]
  - Catheter site swelling [Unknown]
  - Rhinovirus infection [Unknown]
  - Pyrexia [Recovered/Resolved]
  - Diarrhoea [Recovered/Resolved]
  - Catheter site erythema [Unknown]
  - Catheter site pain [Unknown]
  - Catheterisation cardiac [Unknown]
  - Dyspnoea exertional [Unknown]

NARRATIVE: CASE EVENT DATE: 20191006
